FAERS Safety Report 7246961-7 (Version None)
Quarter: 2011Q1

REPORT INFORMATION
  Report Type: 
  Country: None (occurrence: None)
  Receive Date: 20110127
  Receipt Date: 20110124
  Transmission Date: 20110831
  Serious: Yes (Other)
  Sender: FDA-Public Use
  Company Number: DE-TEVA-256893GER

PATIENT
  Sex: Female
  Weight: 70 kg

DRUGS (8)
  1. METAMIZOLE SODIUM (NOVAMINSULFON) [Concomitant]
  2. AMITRIPTYLINE [Suspect]
     Dates: start: 20101001
  3. DIMENHYDRINATE (VOMEX A) [Concomitant]
  4. PANTOZOL [Concomitant]
     Indication: VARICES OESOPHAGEAL
     Dates: start: 20080101
  5. PANTOZOL [Concomitant]
     Indication: GASTRIC VARICES
  6. DOCITON [Concomitant]
     Dates: start: 20080101
  7. OXYCODONE HCL [Suspect]
     Indication: ARTERIAL OCCLUSIVE DISEASE
     Route: 048
     Dates: start: 20100701, end: 20101101
  8. MARCUMAR [Concomitant]
     Indication: THROMBOSIS
     Dates: start: 20100701

REACTIONS (7)
  - MEMORY IMPAIRMENT [None]
  - PROTHROMBIN TIME PROLONGED [None]
  - HYPERHIDROSIS [None]
  - CONFUSIONAL STATE [None]
  - PRURITUS GENERALISED [None]
  - HOSTILITY [None]
  - MENTAL DISORDER [None]
